FAERS Safety Report 6700885-X (Version None)
Quarter: 2010Q2

REPORT INFORMATION
  Report Type: 
  Country: None (occurrence: None)
  Receive Date: 20100428
  Receipt Date: 20100419
  Transmission Date: 20101027
  Serious: Yes (Other)
  Sender: FDA-Public Use
  Company Number: US-GILEAD-2010-0028641

PATIENT
  Sex: Male

DRUGS (4)
  1. TRUVADA [Suspect]
     Indication: HIV INFECTION
     Route: 064
     Dates: end: 20090728
  2. REYATAZ [Concomitant]
     Indication: HIV INFECTION
     Route: 064
     Dates: end: 20090728
  3. COMBIVIR [Concomitant]
     Indication: HIV INFECTION
     Route: 064
     Dates: start: 20090728
  4. KALETRA [Concomitant]
     Indication: HIV INFECTION
     Route: 064
     Dates: start: 20090728

REACTIONS (3)
  - ADRENOGENITAL SYNDROME [None]
  - HYPOCALCAEMIA [None]
  - HYPONATRAEMIA [None]
